FAERS Safety Report 16874559 (Version 6)
Quarter: 2023Q4

REPORT INFORMATION
  Report Type: Spontaneous
  Country: US (occurrence: None)
  Receive Date: 20191001
  Receipt Date: 20231018
  Transmission Date: 20240110
  Serious: Yes (Hospitalization, Other)
  Sender: FDA-Public Use
  Company Number: 2019SF36586

PATIENT
  Age: 714 Month
  Sex: Female

DRUGS (137)
  1. FARXIGA [Suspect]
     Active Substance: DAPAGLIFLOZIN PROPANEDIOL
     Indication: Weight decreased
     Route: 048
     Dates: start: 201708, end: 201805
  2. FARXIGA [Suspect]
     Active Substance: DAPAGLIFLOZIN PROPANEDIOL
     Indication: Type 2 diabetes mellitus
     Route: 048
     Dates: start: 201708, end: 201805
  3. FARXIGA [Suspect]
     Active Substance: DAPAGLIFLOZIN PROPANEDIOL
     Indication: Blood pressure decreased
     Route: 048
     Dates: start: 201708, end: 201805
  4. FARXIGA [Suspect]
     Active Substance: DAPAGLIFLOZIN PROPANEDIOL
     Indication: Weight decreased
     Route: 048
     Dates: start: 20170809, end: 20180920
  5. FARXIGA [Suspect]
     Active Substance: DAPAGLIFLOZIN PROPANEDIOL
     Indication: Type 2 diabetes mellitus
     Route: 048
     Dates: start: 20170809, end: 20180920
  6. FARXIGA [Suspect]
     Active Substance: DAPAGLIFLOZIN PROPANEDIOL
     Indication: Blood pressure decreased
     Route: 048
     Dates: start: 20170809, end: 20180920
  7. FARXIGA [Suspect]
     Active Substance: DAPAGLIFLOZIN PROPANEDIOL
     Indication: Weight decreased
     Route: 048
     Dates: start: 20180926
  8. FARXIGA [Suspect]
     Active Substance: DAPAGLIFLOZIN PROPANEDIOL
     Indication: Type 2 diabetes mellitus
     Route: 048
     Dates: start: 20180926
  9. FARXIGA [Suspect]
     Active Substance: DAPAGLIFLOZIN PROPANEDIOL
     Indication: Blood pressure decreased
     Route: 048
     Dates: start: 20180926
  10. FARXIGA [Suspect]
     Active Substance: DAPAGLIFLOZIN PROPANEDIOL
     Indication: Weight decreased
     Route: 048
     Dates: start: 20180926
  11. FARXIGA [Suspect]
     Active Substance: DAPAGLIFLOZIN PROPANEDIOL
     Indication: Type 2 diabetes mellitus
     Route: 048
     Dates: start: 20180926
  12. FARXIGA [Suspect]
     Active Substance: DAPAGLIFLOZIN PROPANEDIOL
     Indication: Blood pressure decreased
     Route: 048
     Dates: start: 20180926
  13. FARXIGA [Suspect]
     Active Substance: DAPAGLIFLOZIN PROPANEDIOL
     Indication: Weight decreased
     Dosage: 5 AND 10 MG DAILY
     Route: 048
  14. FARXIGA [Suspect]
     Active Substance: DAPAGLIFLOZIN PROPANEDIOL
     Indication: Type 2 diabetes mellitus
     Dosage: 5 AND 10 MG DAILY
     Route: 048
  15. FARXIGA [Suspect]
     Active Substance: DAPAGLIFLOZIN PROPANEDIOL
     Indication: Blood pressure decreased
     Dosage: 5 AND 10 MG DAILY
     Route: 048
  16. JANUVIA [Concomitant]
     Active Substance: SITAGLIPTIN PHOSPHATE
     Dates: start: 20140131
  17. ACETAMINOPHEN\HYDROCODONE BITARTRATE [Concomitant]
     Active Substance: ACETAMINOPHEN\HYDROCODONE BITARTRATE
     Dates: start: 20140609
  18. GABAPENTIN [Concomitant]
     Active Substance: GABAPENTIN
     Dates: start: 20140123
  19. RANITIDINE [Concomitant]
     Active Substance: RANITIDINE
  20. NEXIUM [Concomitant]
     Active Substance: ESOMEPRAZOLE MAGNESIUM
  21. METOPROLOL TARTRATE [Concomitant]
     Active Substance: METOPROLOL TARTRATE
  22. PRADAXA [Concomitant]
     Active Substance: DABIGATRAN ETEXILATE MESYLATE
  23. HYDROCHLOROTHIAZIDE [Concomitant]
     Active Substance: HYDROCHLOROTHIAZIDE
     Dates: start: 20140628
  24. ATORVASTATIN [Concomitant]
     Active Substance: ATORVASTATIN
  25. BACLOFEN [Concomitant]
     Active Substance: BACLOFEN
     Dates: start: 20140906
  26. DILTIAZEM [Concomitant]
     Active Substance: DILTIAZEM
  27. ISOSORBIDE MONONITRATE [Concomitant]
     Active Substance: ISOSORBIDE MONONITRATE
  28. CEPHALEXIN [Concomitant]
     Active Substance: CEPHALEXIN
  29. RANEXA [Concomitant]
     Active Substance: RANOLAZINE
  30. FLUCONAZOLE [Concomitant]
     Active Substance: FLUCONAZOLE
     Dates: start: 20140522
  31. VENTOLIN [Concomitant]
     Active Substance: ALBUTEROL SULFATE
  32. GLIMEPIRIDE [Concomitant]
     Active Substance: GLIMEPIRIDE
     Dates: start: 20150106
  33. MOVANTIK [Concomitant]
     Active Substance: NALOXEGOL OXALATE
  34. INVOKANA [Concomitant]
     Active Substance: CANAGLIFLOZIN
  35. ACYCLOVIR [Concomitant]
     Active Substance: ACYCLOVIR
  36. OMEPRAZOLE [Concomitant]
     Active Substance: OMEPRAZOLE
     Dates: start: 20150106
  37. PREDNISONE [Concomitant]
     Active Substance: PREDNISONE
     Dates: start: 20140117
  38. VICTOZA [Concomitant]
     Active Substance: LIRAGLUTIDE
  39. AUGMENTIN [Concomitant]
     Active Substance: AMOXICILLIN\CLAVULANATE POTASSIUM
  40. METFORMIN [Concomitant]
     Active Substance: METFORMIN HYDROCHLORIDE
     Dates: start: 20140131
  41. ZEMURON [Concomitant]
     Active Substance: ROCURONIUM BROMIDE
  42. MIDAZOLAM HYDROCHLORIDE [Concomitant]
     Active Substance: MIDAZOLAM HYDROCHLORIDE
  43. CEFTRIAXONE [Concomitant]
     Active Substance: CEFTRIAXONE\CEFTRIAXONE SODIUM
  44. ISOPTIN [Concomitant]
     Active Substance: VERAPAMIL HYDROCHLORIDE
  45. ASPIRIN [Concomitant]
     Active Substance: ASPIRIN
  46. HEPARIN [Concomitant]
     Active Substance: HEPARIN SODIUM
  47. DRONEDARONE [Concomitant]
     Active Substance: DRONEDARONE
  48. ENOXAPARIN [Concomitant]
     Active Substance: ENOXAPARIN
  49. LANOXIN [Concomitant]
     Active Substance: DIGOXIN
  50. ZOSYN [Concomitant]
     Active Substance: PIPERACILLIN SODIUM\TAZOBACTAM SODIUM
  51. OMNIPAQUE [Concomitant]
     Active Substance: IOHEXOL
  52. BUMETANIDE [Concomitant]
     Active Substance: BUMETANIDE
  53. CEFAZOLIN [Concomitant]
     Active Substance: CEFAZOLIN
  54. PANTOPRAZOLE [Concomitant]
     Active Substance: PANTOPRAZOLE
  55. DUONEB [Concomitant]
     Active Substance: ALBUTEROL SULFATE\IPRATROPIUM BROMIDE
  56. MIRALAX [Concomitant]
     Active Substance: POLYETHYLENE GLYCOL 3350
  57. PANTOPRAZOLE SODIUM [Concomitant]
     Active Substance: PANTOPRAZOLE SODIUM
  58. HIBICLENS [Concomitant]
     Active Substance: CHLORHEXIDINE GLUCONATE
  59. MELATONIN [Concomitant]
     Active Substance: MELATONIN
  60. BISOPROL/HYDROCHLOROTHIAZIDE [Concomitant]
  61. IBUPROFEN [Concomitant]
     Active Substance: IBUPROFEN
     Dates: start: 20140505
  62. SUCRALFATE [Concomitant]
     Active Substance: SUCRALFATE
  63. ONDANSETRON [Concomitant]
     Active Substance: ONDANSETRON
     Dates: start: 20140513
  64. CALCIUM CARBONATE [Concomitant]
     Active Substance: CALCIUM CARBONATE
  65. LINZESS [Concomitant]
     Active Substance: LINACLOTIDE
  66. NITROGLYCERIN [Concomitant]
     Active Substance: NITROGLYCERIN
  67. DOCUSATE [Concomitant]
     Active Substance: DOCUSATE
  68. LOSARTAN POTASSIUM [Concomitant]
     Active Substance: LOSARTAN POTASSIUM
     Dates: start: 20140603
  69. CETIRIZINE [Concomitant]
     Active Substance: CETIRIZINE HYDROCHLORIDE
  70. KEPPRA [Concomitant]
     Active Substance: LEVETIRACETAM
  71. BELSOMRA [Concomitant]
     Active Substance: SUVOREXANT
  72. SOTALOL [Concomitant]
     Active Substance: SOTALOL
  73. VITAMINS [Concomitant]
     Active Substance: VITAMINS
  74. DULAGLUTIDE [Concomitant]
     Active Substance: DULAGLUTIDE
  75. OMEGA 3 [Concomitant]
     Active Substance: CAPSAICIN
  76. UBIDECARENONE/ACETYLCYSTEINE/THIOCTIC ACID/(6S)-5-METHYLTETRAHYDROFOLA [Concomitant]
  77. BASAGLAR [Concomitant]
     Active Substance: INSULIN GLARGINE
  78. BYDUREON [Concomitant]
     Active Substance: EXENATIDE
  79. PRODISAN [Concomitant]
  80. CALCIUM [Concomitant]
     Active Substance: CALCIUM
  81. COENZYME Q10 [Concomitant]
     Active Substance: DIETARY SUPPLEMENT\UBIDECARENONE
  82. NICODERM CQ [Concomitant]
     Active Substance: NICOTINE
  83. FERROUS SULFATE [Concomitant]
     Active Substance: FERROUS SULFATE
  84. LOMOTIL [Concomitant]
     Active Substance: ATROPINE SULFATE\DIPHENOXYLATE HYDROCHLORIDE
  85. MAGNESIUM OXIDE [Concomitant]
     Active Substance: MAGNESIUM OXIDE
  86. AMBIEN [Concomitant]
     Active Substance: ZOLPIDEM TARTRATE
  87. MILK OF MAGNESIA [Concomitant]
     Active Substance: MAGNESIUM HYDROXIDE
  88. SEVOFLURANE [Concomitant]
     Active Substance: SEVOFLURANE
  89. XYLOCAINE [Concomitant]
     Active Substance: LIDOCAINE HYDROCHLORIDE
  90. ROPIVACAINE HYDROCHLORIDE/FENTANYL CITRATE [Concomitant]
  91. PNEUMOVAX 23 [Concomitant]
     Active Substance: PNEUMOCOCCAL VACCINE, POLYVALENT 23
  92. SODIUM CHLORIDE [Concomitant]
     Active Substance: SODIUM CHLORIDE
  93. FLONASE [Concomitant]
     Active Substance: FLUTICASONE PROPIONATE
     Dates: start: 20141210
  94. VOLTAREN [Concomitant]
     Active Substance: DICLOFENAC SODIUM
  95. RIVAROXABAN [Concomitant]
     Active Substance: RIVAROXABAN
  96. MUPIROCIN [Concomitant]
     Active Substance: MUPIROCIN
     Dates: start: 20140117
  97. SULFAMETHOXAZOLE SODIUM/AMINOCAPROIC ACID/DIPOTASSIUM GLYCYRRHIZATE [Concomitant]
     Dates: start: 20140117
  98. LYRICA [Concomitant]
     Active Substance: PREGABALIN
     Dates: start: 20140131
  99. LISINOPRIL [Concomitant]
     Active Substance: LISINOPRIL
     Dates: start: 20140313
  100. LEVEMIR [Concomitant]
     Active Substance: INSULIN DETEMIR
     Dates: start: 20140313
  101. BACTRIM [Concomitant]
     Active Substance: SULFAMETHOXAZOLE\TRIMETHOPRIM
  102. DUODERM [Concomitant]
  103. MORPHINE [Concomitant]
     Active Substance: MORPHINE
  104. PAPAVER SOMNIFERUM LATEX/GLYCYRRHIZA GLABRA/BENZOIC ACID/AMMONIA/PIMPI [Concomitant]
  105. POTASSIUM [Concomitant]
     Active Substance: POTASSIUM
  106. VITAMIN D [Concomitant]
     Active Substance: VITAMIN D NOS
  107. STADOL [Concomitant]
     Active Substance: BUTORPHANOL TARTRATE
  108. VITAMIN B12 [Concomitant]
     Active Substance: CYANOCOBALAMIN
  109. FOLINIC ACID/CYANOCOBALAMIN/FERRITIN [Concomitant]
  110. ACETYLCYSTEINE/ECHINACEA SPP./DROSERA SPP./BROMELAINS/ASCORBIC ACID [Concomitant]
  111. INSULIN NOS [Concomitant]
     Active Substance: INSULIN NOS
  112. PROTHROMBIN [Concomitant]
     Active Substance: PROTHROMBIN
  113. FLUOXETINE [Concomitant]
     Active Substance: FLUOXETINE HYDROCHLORIDE
  114. HYDROCODONE [Concomitant]
     Active Substance: HYDROCODONE
  115. TROPHYSAN [Concomitant]
  116. REQUIP [Concomitant]
     Active Substance: ROPINIROLE HYDROCHLORIDE
  117. DIETARY SUPPLEMENT\HERBALS\MILK THISTLE [Concomitant]
     Active Substance: MILK THISTLE
  118. PROMETHAZINE [Concomitant]
     Active Substance: PROMETHAZINE HYDROCHLORIDE
  119. FENTANYL [Concomitant]
     Active Substance: FENTANYL
  120. COMPAZINE [Concomitant]
     Active Substance: PROCHLORPERAZINE MALEATE
  121. AMPICILLIN [Concomitant]
     Active Substance: AMPICILLIN
  122. CLINDAMYCIN [Concomitant]
     Active Substance: CLINDAMYCIN
  123. CEFEPIME [Concomitant]
     Active Substance: CEFEPIME HYDROCHLORIDE
  124. MEROPENEM [Concomitant]
     Active Substance: MEROPENEM
  125. TETRACYCLINE [Concomitant]
     Active Substance: TETRACYCLINE
  126. TRIMETH/SULF [Concomitant]
  127. VANCOMYCIN [Concomitant]
     Active Substance: VANCOMYCIN
  128. OXACILLIN [Concomitant]
     Active Substance: OXACILLIN SODIUM
  129. PHENOL/MENTHOL [Concomitant]
  130. CHLORASEPTIC SORE THROAT [Concomitant]
     Active Substance: PHENOL
  131. DEXTROSE [Concomitant]
     Active Substance: DEXTROSE\DEXTROSE MONOHYDRATE
  132. TROPSIN [Concomitant]
  133. TRAZONE [Concomitant]
  134. FUROSEMIDE [Concomitant]
     Active Substance: FUROSEMIDE
  135. NOVOLOG [Concomitant]
     Active Substance: INSULIN ASPART
  136. TRESIBA [Concomitant]
     Active Substance: INSULIN DEGLUDEC
  137. OZEMPIC [Concomitant]
     Active Substance: SEMAGLUTIDE

REACTIONS (9)
  - Perirectal abscess [Unknown]
  - Abscess limb [Unknown]
  - Fournier^s gangrene [Unknown]
  - Subcutaneous abscess [Unknown]
  - Cellulitis [Unknown]
  - Necrotising fasciitis [Unknown]
  - Genital abscess [Unknown]
  - Anal abscess [Unknown]
  - Panic attack [Unknown]

NARRATIVE: CASE EVENT DATE: 20180601
